FAERS Safety Report 22196219 (Version 1)
Quarter: 2023Q2

REPORT INFORMATION
  Report Type: Spontaneous
  Country: US (occurrence: US)
  Receive Date: 20230411
  Receipt Date: 20230411
  Transmission Date: 20230722
  Serious: No
  Sender: FDA-Public Use
  Company Number: US-BoehringerIngelheim-2023-BI-230677

PATIENT

DRUGS (1)
  1. SPIRIVA RESPIMAT [Suspect]
     Active Substance: TIOTROPIUM BROMIDE
     Indication: Asthma
     Dosage: 1.25MCG; INHALATION SPRAY

REACTIONS (2)
  - Wheezing [Unknown]
  - Product administration error [Unknown]
